FAERS Safety Report 9453618 (Version 1)
Quarter: 2013Q1

REPORT INFORMATION
  Report Type: Not Available
  Country: US (occurrence: US)
  Receive Date: 20120321
  Receipt Date: 20120321
  Transmission Date: 20140127
  Serious: Yes (Hospitalization, Other)
  Sender: FDA-Public Use
  Company Number: US-LUNDBECK-DKLU1074693

PATIENT
  Age: 44 None
  Sex: Male

DRUGS (9)
  1. SABRIL     (TABLET) [Suspect]
     Indication: CONVULSION
     Route: 048
     Dates: start: 201108, end: 201110
  2. SABRIL     (TABLET) [Suspect]
     Route: 048
     Dates: start: 201110
  3. SABRIL     (TABLET) [Suspect]
     Route: 048
     Dates: start: 20111109
  4. SABRIL     (TABLET) [Suspect]
     Route: 048
     Dates: start: 20111109
  5. SABRIL     (TABLET) [Suspect]
     Route: 048
     Dates: start: 20111109
  6. FELBATOL [Concomitant]
     Indication: PRODUCT USED FOR UNKNOWN INDICATION
  7. TRILEPTAL [Concomitant]
     Indication: PRODUCT USED FOR UNKNOWN INDICATION
  8. CLONAZEPAM [Concomitant]
     Indication: PRODUCT USED FOR UNKNOWN INDICATION
  9. BANZEL [Concomitant]
     Indication: PRODUCT USED FOR UNKNOWN INDICATION

REACTIONS (4)
  - Visual impairment [Unknown]
  - Hospitalisation [Unknown]
  - Fatigue [Unknown]
  - Drug ineffective [Unknown]
